FAERS Safety Report 17335691 (Version 4)
Quarter: 2020Q2

REPORT INFORMATION
  Report Type: Report from Study
  Country: US (occurrence: US)
  Receive Date: 20200128
  Receipt Date: 20200615
  Transmission Date: 20200713
  Serious: Yes (Hospitalization)
  Sender: FDA-Public Use
  Company Number: US-ACTELION-A-NJ2020-201088

PATIENT
  Age: 47 Year
  Sex: Male
  Weight: 136.05 kg

DRUGS (2)
  1. VENTAVIS [Suspect]
     Active Substance: ILOPROST
     Indication: PULMONARY HYPERTENSION
     Dosage: 5.0 MCG, 6-9X/DAILY
     Route: 055
  2. BOSENTAN. [Concomitant]
     Active Substance: BOSENTAN
     Route: 048

REACTIONS (7)
  - Pharyngitis streptococcal [Unknown]
  - Nasopharyngitis [Unknown]
  - Vocal cord inflammation [Unknown]
  - Cellulitis [Unknown]
  - Dyspnoea exertional [Not Recovered/Not Resolved]
  - Pneumonia [Unknown]
  - Therapy interrupted [Unknown]

NARRATIVE: CASE EVENT DATE: 202005
